FAERS Safety Report 8839646 (Version 1)
Quarter: 2012Q4

REPORT INFORMATION
  Report Type: 
  Country: ES (occurrence: ES)
  Receive Date: 20121015
  Receipt Date: 20121015
  Transmission Date: 20130627
  Serious: Yes (Hospitalization)
  Sender: FDA-Public Use
  Company Number: ES-SANOFI-AVENTIS-2012SA073846

PATIENT
  Age: 40 Year
  Sex: Female

DRUGS (10)
  1. CLOPIDOGREL BISULFATE [Suspect]
     Indication: ANTIPLATELET THERAPY
     Dosage: loading dose
     Route: 065
  2. CLOPIDOGREL BISULFATE [Suspect]
     Indication: ANTIPLATELET THERAPY
     Route: 065
  3. ACETYLSALICYLIC ACID [Concomitant]
  4. ABCIXIMAB [Concomitant]
  5. RANITIDINE [Concomitant]
  6. HEPARIN SODIUM [Concomitant]
  7. FUROSEMIDE [Concomitant]
  8. EPLERENONE [Concomitant]
  9. LEVOSIMENDAN [Concomitant]
     Dosage: infusion
  10. PRASUGREL [Concomitant]

REACTIONS (3)
  - Thrombosis in device [Unknown]
  - Electrocardiogram ST segment elevation [Unknown]
  - Cardiogenic shock [Unknown]
